FAERS Safety Report 13628540 (Version 4)
Quarter: 2017Q3

REPORT INFORMATION
  Report Type: Spontaneous
  Country: DE (occurrence: DE)
  Receive Date: 20170608
  Receipt Date: 20170728
  Transmission Date: 20171127
  Serious: Yes (Hospitalization, Congenital Anomaly, Other)
  Sender: FDA-Public Use
  Company Number: DE-TEVA-776531GER

PATIENT
  Sex: Male

DRUGS (6)
  1. RITUXIMAB. [Suspect]
     Active Substance: RITUXIMAB
     Indication: DIFFUSE LARGE B-CELL LYMPHOMA
     Route: 064
  2. DOXORUBICIN [Suspect]
     Active Substance: DOXORUBICIN
     Indication: DIFFUSE LARGE B-CELL LYMPHOMA
     Route: 064
  3. PREDNISOLONE. [Suspect]
     Active Substance: PREDNISOLONE
     Indication: DIFFUSE LARGE B-CELL LYMPHOMA
     Dosage: WAS GIVEN ON 5 CONSECUTIVE DAYS
     Route: 064
  4. CYCLOPHOSPHAMIDE. [Suspect]
     Active Substance: CYCLOPHOSPHAMIDE
     Indication: DIFFUSE LARGE B-CELL LYMPHOMA
     Route: 064
  5. DOXORUBICIN [Suspect]
     Active Substance: DOXORUBICIN
     Route: 065
  6. VINCRISTINE [Suspect]
     Active Substance: VINCRISTINE
     Indication: DIFFUSE LARGE B-CELL LYMPHOMA
     Route: 064

REACTIONS (11)
  - Acute kidney injury [Recovered/Resolved]
  - Acidosis [Recovered/Resolved]
  - Cardiovascular insufficiency [Recovered/Resolved]
  - Congenital cardiovascular anomaly [Recovered/Resolved]
  - Respiratory failure [Recovered/Resolved]
  - Renal impairment [Recovered/Resolved]
  - Foetal exposure during pregnancy [Unknown]
  - Cardiac output decreased [Recovered/Resolved]
  - Congestive cardiomyopathy [Recovered/Resolved]
  - Cardiotoxicity [Recovered/Resolved]
  - Anuria [Recovered/Resolved]
